FAERS Safety Report 15279971 (Version 1)
Quarter: 2018Q3

REPORT INFORMATION
  Report Type: Spontaneous
  Country: US (occurrence: US)
  Receive Date: 20180730
  Receipt Date: 20180730
  Transmission Date: 20181010
  Serious: Yes (Hospitalization)
  Sender: FDA-Public Use
  Company Number: None

PATIENT
  Age: 73 Year
  Sex: Male
  Weight: 85.59 kg

DRUGS (16)
  1. SPIRONOLACTONE. [Concomitant]
     Active Substance: SPIRONOLACTONE
  2. LUPRON [Concomitant]
     Active Substance: LEUPROLIDE ACETATE
  3. ENZALUTAMIDE [Suspect]
     Active Substance: ENZALUTAMIDE
     Indication: PROSTATE CANCER
     Route: 048
     Dates: start: 20160726
  4. CICLOPIROX. [Concomitant]
     Active Substance: CICLOPIROX
  5. METOLAZONE. [Concomitant]
     Active Substance: METOLAZONE
  6. INSULIN [Concomitant]
     Active Substance: INSULIN NOS
  7. TORSEMIDE. [Concomitant]
     Active Substance: TORSEMIDE
  8. ALLOPURINAL [Concomitant]
     Active Substance: ALLOPURINOL
  9. FOLIC ACID. [Concomitant]
     Active Substance: FOLIC ACID
  10. FUROSEMIDE. [Concomitant]
     Active Substance: FUROSEMIDE
  11. DENOSUMAB [Concomitant]
     Active Substance: DENOSUMAB
  12. ZENPEP [Concomitant]
     Active Substance: PANCRELIPASE AMYLASE\PANCRELIPASE LIPASE\PANCRELIPASE PROTEASE
  13. OMEPRAZOLE. [Concomitant]
     Active Substance: OMEPRAZOLE
  14. VITAMIN D [Concomitant]
     Active Substance: CHOLECALCIFEROL
  15. COQ10 [Concomitant]
     Active Substance: UBIDECARENONE
  16. CARVEDILOL. [Concomitant]
     Active Substance: CARVEDILOL

REACTIONS (2)
  - Urinary tract infection [None]
  - Hyponatraemia [None]

NARRATIVE: CASE EVENT DATE: 20180728
